FAERS Safety Report 5661113-X (Version None)
Quarter: 2008Q1

REPORT INFORMATION
  Report Type: 
  Country: None (occurrence: None)
  Receive Date: 20080305
  Receipt Date: 20080227
  Transmission Date: 20080703
  Serious: Yes (Other)
  Sender: FDA-Public Use
  Company Number: 2008004910

PATIENT
  Sex: Female

DRUGS (1)
  1. ZYRTEC [Suspect]
     Dosage: 1 UNSPECIFIED, MORNING, ORAL
     Route: 048
     Dates: start: 20080227

REACTIONS (1)
  - CONVULSION [None]
